FAERS Safety Report 10228712 (Version 1)
Quarter: 2014Q2

REPORT INFORMATION
  Report Type: Spontaneous
  Country: DE (occurrence: DE)
  Receive Date: 20140610
  Receipt Date: 20140610
  Transmission Date: 20141212
  Serious: Yes (Hospitalization)
  Sender: FDA-Public Use
  Company Number: DE-009507513-1406DEU002103

PATIENT
  Age: 74 Year
  Sex: Male

DRUGS (14)
  1. MIRTAZAPIN STADA [Suspect]
     Dosage: 30 MG, QD
     Route: 048
     Dates: start: 20120327, end: 20120422
  2. MIRTAZAPIN STADA [Suspect]
     Dosage: 15 UNK, UNK
     Route: 048
     Dates: start: 20120423, end: 20120502
  3. CIPRALEX [Suspect]
     Dosage: 5 MG, QD
     Route: 048
     Dates: start: 20120327, end: 20120330
  4. ESCITALOPRAM [Suspect]
     Dosage: 10 MG, QD
     Route: 048
     Dates: start: 20120331, end: 20120502
  5. CLEXANE (ENOXAPARIN SODIUM) [Suspect]
     Dosage: 1.2 ML, QD
     Route: 058
     Dates: start: 20120420, end: 20120420
  6. CLEXANE (ENOXAPARIN SODIUM) [Suspect]
     Dosage: 0.6 ML, QD
     Route: 058
     Dates: start: 20120421, end: 20120502
  7. EBIXA [Concomitant]
     Dosage: 10 MG, QD
     Route: 048
     Dates: start: 20100101, end: 20120418
  8. EBIXA [Concomitant]
     Dosage: 15 MG, QD
     Route: 048
     Dates: start: 20120419, end: 20120420
  9. EBIXA [Concomitant]
     Dosage: 20 UNK, UNK
     Route: 048
     Dates: start: 20120421, end: 20120425
  10. EBIXA [Concomitant]
     Dosage: 15 UNK, UNK
     Route: 048
     Dates: start: 20120426, end: 20120426
  11. EBIXA [Concomitant]
     Dosage: 10 UNK, UNK
     Route: 048
     Dates: start: 20120427, end: 20120502
  12. RISPERDAL [Concomitant]
     Dosage: 1 MG, QD
     Route: 048
     Dates: start: 20120413, end: 20120413
  13. RISPERDAL [Concomitant]
     Dosage: 0.5 UNK, UNK
     Route: 048
     Dates: start: 20120414, end: 20120501
  14. BISOPROLOL [Concomitant]
     Dosage: 5 MG, QD
     Route: 048
     Dates: start: 20090101, end: 20120502

REACTIONS (2)
  - Cerebellar haemorrhage [Recovering/Resolving]
  - Tachycardia [Recovering/Resolving]
